FAERS Safety Report 5165459-3 (Version None)
Quarter: 2006Q4

REPORT INFORMATION
  Report Type: 
  Country: None (occurrence: None)
  Receive Date: 20061120
  Receipt Date: 20061115
  Transmission Date: 20070319
  Serious: Yes (Other)
  Sender: FDA-Public Use
  Company Number: 200610360BBE

PATIENT
  Sex: 0

DRUGS (1)
  1. LFB     (NON COMPANY DRUG) [Suspect]

REACTIONS (1)
  - RENAL FAILURE ACUTE [None]
